FAERS Safety Report 24915053 (Version 1)
Quarter: 2025Q1

REPORT INFORMATION
  Report Type: Spontaneous
  Country: UM (occurrence: UM)
  Receive Date: 20250203
  Receipt Date: 20250203
  Transmission Date: 20250408
  Serious: Yes (Other)
  Sender: EMD SERONO INC
  Company Number: UM-Merck Healthcare KGaA-2025004505

PATIENT
  Sex: Female

DRUGS (1)
  1. REBIF [Suspect]
     Active Substance: INTERFERON BETA-1A
     Indication: Multiple sclerosis
     Dates: start: 202311

REACTIONS (4)
  - Multiple sclerosis relapse [Unknown]
  - Syncope [Unknown]
  - Migraine [Unknown]
  - Drug ineffective [Unknown]
